FAERS Safety Report 9201022 (Version 1)
Quarter: 2013Q1

REPORT INFORMATION
  Report Type: Spontaneous
  Country: US (occurrence: None)
  Receive Date: 20130327
  Receipt Date: 20130327
  Transmission Date: 20140127
  Serious: Yes (Other)
  Sender: FDA-Public Use
  Company Number: US-1197291

PATIENT
  Age: 68 Year
  Sex: Male

DRUGS (1)
  1. TRIESENCE [Suspect]
     Indication: MACULAR OEDEMA
     Route: 031
     Dates: start: 20121105, end: 20121105

REACTIONS (2)
  - Visual acuity reduced [None]
  - Anterior chamber cell [None]
